FAERS Safety Report 12986119 (Version 1)
Quarter: 2016Q4

REPORT INFORMATION
  Report Type: Spontaneous
  Country: BE (occurrence: BE)
  Receive Date: 20161130
  Receipt Date: 20161130
  Transmission Date: 20170207
  Serious: Yes (Other)
  Sender: FDA-Public Use
  Company Number: BE-ABBVIE-16P-013-1794179-00

PATIENT
  Sex: Female

DRUGS (1)
  1. BICLAR [Suspect]
     Active Substance: CLARITHROMYCIN
     Indication: ANTIBIOTIC PROPHYLAXIS
     Route: 048

REACTIONS (4)
  - Tachycardia [Unknown]
  - Dyspnoea [Unknown]
  - Localised oedema [Unknown]
  - Paraesthesia [Unknown]
